FAERS Safety Report 12531666 (Version 1)
Quarter: 2016Q3

REPORT INFORMATION
  Report Type: Spontaneous
  Country: US (occurrence: US)
  Receive Date: 20160706
  Receipt Date: 20160706
  Transmission Date: 20161109
  Serious: No
  Sender: FDA-Public Use
  Company Number: US-ELI_LILLY_AND_COMPANY-US201606009175

PATIENT
  Sex: Male

DRUGS (4)
  1. HUMALOG [Suspect]
     Active Substance: INSULIN LISPRO
     Dosage: 12 U, EACH EVENING
     Route: 065
     Dates: start: 201601
  2. HUMALOG [Suspect]
     Active Substance: INSULIN LISPRO
     Indication: TYPE 2 DIABETES MELLITUS
     Dosage: 7 U, EACH MORNING
     Route: 065
     Dates: start: 201601
  3. HUMALOG [Suspect]
     Active Substance: INSULIN LISPRO
     Dosage: 9 U, QD
     Route: 065
     Dates: start: 201601
  4. LEVEMIR [Concomitant]
     Active Substance: INSULIN DETEMIR

REACTIONS (1)
  - Injury associated with device [Recovered/Resolved]
